FAERS Safety Report 11010259 (Version 3)
Quarter: 2015Q3

REPORT INFORMATION
  Report Type: Report from Study
  Country: US (occurrence: US)
  Receive Date: 20150410
  Receipt Date: 20150723
  Transmission Date: 20151125
  Serious: Yes (Other)
  Sender: FDA-Public Use
  Company Number: US-SA-2015SA044720

PATIENT
  Age: 63 Year
  Sex: Female

DRUGS (6)
  1. PROVIGIL [Concomitant]
     Active Substance: MODAFINIL
     Indication: FATIGUE
  2. HYDROCHLOROTHIAZIDE WITH TRIAMTERENE [Concomitant]
     Active Substance: HYDROCHLOROTHIAZIDE\TRIAMTERENE
     Indication: HYPERTENSION
     Dosage: STRENGTH: 25/375
     Dates: start: 2005
  3. PAXIL [Concomitant]
     Active Substance: PAROXETINE HYDROCHLORIDE
     Indication: DEPRESSION
     Dosage: STRENGTH: 40 MG
     Dates: start: 1996
  4. AVONEX [Concomitant]
     Active Substance: INTERFERON BETA-1A
     Indication: MULTIPLE SCLEROSIS
     Dates: start: 19970101, end: 20150209
  5. AUBAGIO [Suspect]
     Active Substance: TERIFLUNOMIDE
     Indication: MULTIPLE SCLEROSIS
     Route: 048
     Dates: start: 20150210
  6. LISINOPRIL. [Concomitant]
     Active Substance: LISINOPRIL
     Indication: HYPERTENSION
     Dates: start: 201407

REACTIONS (9)
  - Synovial cyst [Unknown]
  - Arthritis [Unknown]
  - Epistaxis [Unknown]
  - Diarrhoea [Recovered/Resolved]
  - Hair texture abnormal [Unknown]
  - Contusion [Unknown]
  - Fall [Unknown]
  - Osteonecrosis [Unknown]
  - Muscle tightness [Unknown]

NARRATIVE: CASE EVENT DATE: 2015
